FAERS Safety Report 5825612-X (Version None)
Quarter: 2008Q3

REPORT INFORMATION
  Report Type: 
  Country: None (occurrence: None)
  Receive Date: 20080729
  Receipt Date: 20080729
  Transmission Date: 20090109
  Serious: Yes (Death, Hospitalization)
  Sender: FDA-Public Use
  Company Number: A0739879A

PATIENT
  Age: 63 Year
  Sex: Male

DRUGS (4)
  1. COREG [Suspect]
     Dosage: 1TAB TWICE PER DAY
     Route: 048
     Dates: start: 20060401, end: 20080709
  2. PLAVIX [Concomitant]
  3. COUMADIN [Concomitant]
  4. LIPITOR [Concomitant]

REACTIONS (1)
  - LUNG NEOPLASM MALIGNANT [None]
